FAERS Safety Report 12341784 (Version 1)
Quarter: 2016Q2

REPORT INFORMATION
  Report Type: Spontaneous
  Country: CA (occurrence: CA)
  Receive Date: 20160506
  Receipt Date: 20160506
  Transmission Date: 20160815
  Serious: Yes (Other)
  Sender: FDA-Public Use
  Company Number: CA-009507513-1605CAN002114

PATIENT
  Age: 61 Year
  Sex: Female
  Weight: 64 kg

DRUGS (1)
  1. NITRO-DUR [Suspect]
     Active Substance: NITROGLYCERIN
     Indication: TENDON DISORDER
     Dosage: 0.25 DF, 1 EVERY 1 DAY(S), PATCH EXTENDED RELEASE
     Route: 061

REACTIONS (5)
  - Paraesthesia oral [Recovered/Resolved]
  - Glossodynia [Recovered/Resolved]
  - Swelling face [Recovered/Resolved]
  - Off label use [Recovered/Resolved]
  - Swollen tongue [Recovered/Resolved]
